FAERS Safety Report 5861165-8 (Version None)
Quarter: 2008Q3

REPORT INFORMATION
  Report Type: 
  Country: None (occurrence: None)
  Receive Date: 20080827
  Receipt Date: 20080311
  Transmission Date: 20090109
  Serious: No
  Sender: FDA-Public Use
  Company Number: US-ABBOTT-08P-163-0441770-00

PATIENT
  Sex: Female
  Weight: 66.738 kg

DRUGS (12)
  1. COATED PDS [Suspect]
     Indication: BLOOD TRIGLYCERIDES INCREASED
     Route: 048
     Dates: start: 20080201
  2. CETIRIZINE HYDROCHLORIDE [Concomitant]
     Indication: HYPERSENSITIVITY
     Route: 048
  3. RAMIPRIL [Concomitant]
     Indication: HYPERTENSION
     Route: 048
  4. HYDROCHLOROTHIAZIDE [Concomitant]
     Indication: HYPERTENSION
     Route: 048
  5. ELAIVIL [Concomitant]
     Indication: FIBROMYALGIA
     Route: 048
  6. MELOXICAM [Concomitant]
     Indication: ARTHRITIS
     Route: 048
  7. GUAIFEN-P-EPHED TABLET [Concomitant]
     Indication: ASTHMA
     Route: 048
  8. ADVAIR DISKUS 100/50 [Concomitant]
     Indication: ASTHMA
     Route: 048
  9. NEBULIZER [Concomitant]
     Indication: ASTHMA
  10. FISH OIL [Concomitant]
     Indication: BLOOD TRIGLYCERIDES INCREASED
  11. VITAMIN C, D [Concomitant]
     Indication: DRUG USE FOR UNKNOWN INDICATION
  12. CENTRUM SILVER [Concomitant]
     Indication: DRUG USE FOR UNKNOWN INDICATION

REACTIONS (2)
  - FLUSHING [None]
  - WEIGHT INCREASED [None]
